FAERS Safety Report 25888654 (Version 1)
Quarter: 2025Q4

REPORT INFORMATION
  Report Type: Report from Study
  Country: CA (occurrence: CA)
  Receive Date: 20251007
  Receipt Date: 20251007
  Transmission Date: 20260117
  Serious: Yes (Congenital Anomaly)
  Sender: TAKEDA
  Company Number: CA-TAKEDA-2025TUS085978

PATIENT
  Age: 10 Month
  Sex: Male
  Weight: 3.18 kg

DRUGS (1)
  1. VEDOLIZUMAB [Suspect]
     Active Substance: VEDOLIZUMAB
     Indication: Crohn^s disease
     Dosage: 300 MILLIGRAM
     Route: 064

REACTIONS (3)
  - Naevus flammeus [Unknown]
  - Foetal exposure during pregnancy [Unknown]
  - Exposure via breast milk [Unknown]
